FAERS Safety Report 6896738-7 (Version None)
Quarter: 2010Q3

REPORT INFORMATION
  Report Type: 
  Country: None (occurrence: None)
  Receive Date: 20100802
  Receipt Date: 20070127
  Transmission Date: 20110219
  Serious: No
  Sender: FDA-Public Use
  Company Number: US-PFIZER INC-2007007649

PATIENT
  Sex: Female
  Weight: 75.3 kg

DRUGS (2)
  1. LYRICA [Suspect]
     Indication: PAIN IN EXTREMITY
     Route: 048
     Dates: start: 20070123
  2. SYNTHROID [Concomitant]
     Dates: start: 20030101

REACTIONS (1)
  - CARDIAC FLUTTER [None]
